FAERS Safety Report 20630138 (Version 1)
Quarter: 2022Q1

REPORT INFORMATION
  Report Type: Other
  Country: CA (occurrence: CA)
  Receive Date: 20220324
  Receipt Date: 20220324
  Transmission Date: 20220423
  Serious: Yes (Other)
  Sender: FDA-Public Use
  Company Number: CA-CELLTRION INC.-2022CA003169

PATIENT

DRUGS (3)
  1. RITUXIMAB [Suspect]
     Active Substance: RITUXIMAB
     Indication: Rheumatoid arthritis
     Dosage: 1000 MG
     Route: 042
  2. ENBREL [Concomitant]
     Active Substance: ETANERCEPT
     Dosage: 1.0 DOSAGE FORMS
  3. METHOTREXATE [Concomitant]
     Active Substance: METHOTREXATE
     Dosage: 1.0 DOSAGE FORMS

REACTIONS (9)
  - Feeding disorder [Not Recovered/Not Resolved]
  - Malaise [Not Recovered/Not Resolved]
  - Rheumatoid arthritis [Not Recovered/Not Resolved]
  - Cystitis [Not Recovered/Not Resolved]
  - Nausea [Not Recovered/Not Resolved]
  - Pain [Not Recovered/Not Resolved]
  - Urinary tract infection [Not Recovered/Not Resolved]
  - Vomiting [Not Recovered/Not Resolved]
  - Inappropriate schedule of product administration [Not Recovered/Not Resolved]
